FAERS Safety Report 19119495 (Version 1)
Quarter: 2021Q2

REPORT INFORMATION
  Report Type: Spontaneous
  Country: US (occurrence: US)
  Receive Date: 20210412
  Receipt Date: 20210412
  Transmission Date: 20210717
  Serious: No
  Sender: FDA-Public Use
  Company Number: US-ORGANON-O2103USA002629

PATIENT
  Age: 70 Year
  Sex: Female

DRUGS (2)
  1. NASONEX [Suspect]
     Active Substance: MOMETASONE FUROATE
     Dosage: UNK
  2. NASONEX [Suspect]
     Active Substance: MOMETASONE FUROATE
     Dosage: 1 SPRAY EACH NOSTRIL ONCE DAILY
     Dates: start: 20210302

REACTIONS (5)
  - No adverse event [Unknown]
  - Poor quality device used [Unknown]
  - Device malfunction [Unknown]
  - Product dose omission issue [Unknown]
  - Inappropriate schedule of product administration [Unknown]

NARRATIVE: CASE EVENT DATE: 20210322
